FAERS Safety Report 19641061 (Version 1)
Quarter: 2021Q3

REPORT INFORMATION
  Report Type: Report from Study
  Country: CA (occurrence: CA)
  Receive Date: 20210730
  Receipt Date: 20210730
  Transmission Date: 20211014
  Serious: Yes (Other)
  Sender: FDA-Public Use
  Company Number: CA-SA-2021SA210565

PATIENT
  Age: 67 Year
  Sex: Female

DRUGS (8)
  1. DUPILUMAB [Suspect]
     Active Substance: DUPILUMAB
     Dosage: 300 MG, QOW
     Route: 058
  2. LYDERM [FLUOCINONIDE] [Concomitant]
     Active Substance: FLUOCINONIDE
  3. DUPILUMAB [Suspect]
     Active Substance: DUPILUMAB
     Indication: DERMATITIS ATOPIC
     Dosage: 600 MG, 1X
     Route: 058
     Dates: start: 20201116, end: 20201116
  4. DUPILUMAB [Suspect]
     Active Substance: DUPILUMAB
     Dosage: 300 MG, QM
     Route: 058
  5. MOMETASONE [Concomitant]
     Active Substance: MOMETASONE
  6. HYDROVAL [Concomitant]
     Active Substance: HYDROCORTISONE VALERATE
  7. BETADERM [Concomitant]
     Active Substance: BETAMETHASONE VALERATE
  8. HYDROVAL [Concomitant]
     Active Substance: HYDROCORTISONE VALERATE

REACTIONS (5)
  - Dry eye [Not Recovered/Not Resolved]
  - Dry mouth [Not Recovered/Not Resolved]
  - Off label use [Not Recovered/Not Resolved]
  - Sjogren^s syndrome [Not Recovered/Not Resolved]
  - Conjunctivitis [Not Recovered/Not Resolved]
